FAERS Safety Report 18315569 (Version 2)
Quarter: 2020Q4

REPORT INFORMATION
  Report Type: Report from Study
  Country: None (occurrence: US)
  Receive Date: 20200926
  Receipt Date: 20201001
  Transmission Date: 20210113
  Serious: Yes (Hospitalization, Other)
  Sender: FDA-Public Use
  Company Number: US-ABBVIE-20K-163-3581563-00

PATIENT
  Age: 15 Year
  Sex: Female

DRUGS (1)
  1. HUMIRA [Suspect]
     Active Substance: ADALIMUMAB
     Indication: CROHN^S DISEASE
     Route: 058
     Dates: start: 201906

REACTIONS (2)
  - Intestinal obstruction [Unknown]
  - Ileal stenosis [Unknown]

NARRATIVE: CASE EVENT DATE: 202009
